FAERS Safety Report 17825842 (Version 1)
Quarter: 2020Q2

REPORT INFORMATION
  Report Type: Spontaneous
  Country: US (occurrence: US)
  Receive Date: 20200526
  Receipt Date: 20200526
  Transmission Date: 20200714
  Serious: No
  Sender: FDA-Public Use
  Company Number: US-BRISTOL-MYERS SQUIBB COMPANY-BMS-2020-040534

PATIENT
  Age: 6 Decade
  Sex: Male

DRUGS (2)
  1. YERVOY [Suspect]
     Active Substance: IPILIMUMAB
     Indication: METASTATIC MALIGNANT MELANOMA
     Dosage: 3 MILLIGRAM/KILOGRAM,ONCE
     Route: 042
  2. OPDIVO [Suspect]
     Active Substance: NIVOLUMAB
     Indication: METASTATIC MALIGNANT MELANOMA
     Dosage: 1 MILLIGRAM/KILOGRAM, Q2WK
     Route: 042

REACTIONS (7)
  - Headache [Unknown]
  - Chills [Unknown]
  - Vomiting [Unknown]
  - Lethargy [Unknown]
  - Pain in extremity [Unknown]
  - Nausea [Unknown]
  - Pyrexia [Unknown]

NARRATIVE: CASE EVENT DATE: 202005
